FAERS Safety Report 25001712 (Version 2)
Quarter: 2025Q2

REPORT INFORMATION
  Report Type: Spontaneous
  Country: AU (occurrence: AU)
  Receive Date: 20250223
  Receipt Date: 20250410
  Transmission Date: 20250717
  Serious: No
  Sender: AMGEN
  Company Number: AU-AMGEN-AUSSP2025032950

PATIENT
  Age: 78 Year
  Sex: Male

DRUGS (2)
  1. PROLIA [Suspect]
     Active Substance: DENOSUMAB
     Indication: Osteoporosis
     Dosage: UNK, Q6MO (STRENGTH OF THE AFFECTED PRODUCT(S): 60MG)
     Route: 058
  2. SINEMET CR [Concomitant]
     Active Substance: CARBIDOPA\LEVODOPA

REACTIONS (3)
  - Therapy interrupted [Unknown]
  - Product storage error [Unknown]
  - Circumstance or information capable of leading to medication error [Unknown]

NARRATIVE: CASE EVENT DATE: 20250214
